FAERS Safety Report 11414281 (Version 1)
Quarter: 2015Q3

REPORT INFORMATION
  Report Type: Spontaneous
  Country: None (occurrence: SE)
  Receive Date: 20150824
  Receipt Date: 20150824
  Transmission Date: 20151125
  Serious: Yes (Other)
  Sender: FDA-Public Use
  Company Number: SE-MEDAC PHARMA, INC.-1041331

PATIENT
  Age: 47 Year
  Sex: Male

DRUGS (1)
  1. METOTAB [Suspect]
     Active Substance: METHOTREXATE SODIUM
     Dates: start: 20150115, end: 20150531

REACTIONS (1)
  - Peyronie^s disease [Not Recovered/Not Resolved]

NARRATIVE: CASE EVENT DATE: 20150530
